FAERS Safety Report 18979413 (Version 2)
Quarter: 2022Q3

REPORT INFORMATION
  Report Type: Report from Study
  Country: US (occurrence: US)
  Receive Date: 20210308
  Receipt Date: 20220812
  Transmission Date: 20221027
  Serious: No
  Sender: FDA-Public Use
  Company Number: US-NOVARTISTESTPH-NVSC2021US053460

PATIENT
  Sex: Male

DRUGS (2)
  1. ENTRESTO [Suspect]
     Active Substance: SACUBITRIL\VALSARTAN
     Indication: Product used for unknown indication
     Dosage: 0.5 DF, BID, 24/26 MG (SACUBITRIL 24.3 MG, VALSARTAN 25.7 MG)
     Route: 048
  2. ENTRESTO [Suspect]
     Active Substance: SACUBITRIL\VALSARTAN
     Dosage: 24 MG, QD, (24/26 MG) (SACUBITRIL 24.3 MG, VALSARTAN 25.7 MG)
     Route: 048

REACTIONS (3)
  - Hypotension [Unknown]
  - Wrong technique in product usage process [Unknown]
  - Prescribed underdose [Unknown]
